FAERS Safety Report 21651610 (Version 1)
Quarter: 2022Q4

REPORT INFORMATION
  Report Type: Spontaneous
  Country: US (occurrence: None)
  Receive Date: 20221123
  Receipt Date: 20221123
  Transmission Date: 20230113
  Serious: Yes (Death)
  Sender: FDA-Public Use
  Company Number: None

PATIENT
  Age: 81 Year
  Sex: Female

DRUGS (13)
  1. MEKINIST [Suspect]
     Active Substance: TRAMETINIB DIMETHYL SULFOXIDE
     Indication: Lung neoplasm malignant
     Dosage: FREQUENCY : DAILY;?
     Route: 048
  2. TAFINLAR [Suspect]
     Active Substance: DABRAFENIB MESYLATE
     Indication: Lung neoplasm malignant
     Dosage: FREQUENCY : TWICE A DAY;?
     Route: 048
  3. CHLORPHENIRAMINE [Concomitant]
     Active Substance: CHLORPHENIRAMINE
  4. DELSYM [Concomitant]
     Active Substance: DEXTROMETHORPHAN
  5. IPRATROPIUM BROMIDE [Concomitant]
     Active Substance: IPRATROPIUM BROMIDE
  6. ALBUTEROL\IPRATROPIUM [Concomitant]
     Active Substance: ALBUTEROL\IPRATROPIUM
  7. LOSARTAN [Concomitant]
     Active Substance: LOSARTAN
  8. NEURONTIN [Concomitant]
     Active Substance: GABAPENTIN
  9. OCUVITE [Concomitant]
     Active Substance: VITAMINS
  10. SIMVASTATIN [Concomitant]
     Active Substance: SIMVASTATIN
  11. VABYSMO [Concomitant]
     Active Substance: FARICIMAB-SVOA
  12. WARFARIN [Concomitant]
     Active Substance: WARFARIN
  13. ZOLPIDEM [Concomitant]
     Active Substance: ZOLPIDEM TARTRATE

REACTIONS (1)
  - Death [None]
